FAERS Safety Report 20796394 (Version 2)
Quarter: 2022Q3

REPORT INFORMATION
  Report Type: Report from Study
  Country: DO (occurrence: DO)
  Receive Date: 20220506
  Receipt Date: 20220906
  Transmission Date: 20221026
  Serious: Yes (Other)
  Sender: FDA-Public Use
  Company Number: DO-NOVARTISPH-NVSC2022DO102162

PATIENT
  Sex: Female

DRUGS (2)
  1. KISQALI [Suspect]
     Active Substance: RIBOCICLIB
     Indication: Breast cancer
     Dosage: 600 MG, QD
     Route: 048
     Dates: start: 20210924
  2. KISQALI [Suspect]
     Active Substance: RIBOCICLIB
     Dosage: UNK
     Route: 065
     Dates: start: 20220317

REACTIONS (7)
  - Pulmonary oedema [Unknown]
  - Metastasis [Unknown]
  - Pulmonary pain [Unknown]
  - Breast pain [Unknown]
  - Chest pain [Unknown]
  - Lung disorder [Unknown]
  - Drug ineffective [Unknown]
